FAERS Safety Report 22224094 (Version 1)
Quarter: 2023Q2

REPORT INFORMATION
  Report Type: Spontaneous
  Country: FR (occurrence: FR)
  Receive Date: 20230418
  Receipt Date: 20230418
  Transmission Date: 20230722
  Serious: Yes (Other)
  Sender: FDA-Public Use
  Company Number: FR-BAYER-2023A047876

PATIENT

DRUGS (1)
  1. CIPROFLOXACIN [Suspect]
     Active Substance: CIPROFLOXACIN
     Route: 064

REACTIONS (4)
  - Premature baby [None]
  - Foetal exposure during pregnancy [None]
  - Low birth weight baby [None]
  - Neonatal respiratory distress syndrome [None]
